FAERS Safety Report 8072450-6 (Version None)
Quarter: 2012Q1

REPORT INFORMATION
  Report Type: 
  Country: None (occurrence: None)
  Receive Date: 20120126
  Receipt Date: 20120123
  Transmission Date: 20120608
  Serious: Yes (Other)
  Sender: FDA-Public Use
  Company Number: US-SANOFI-AVENTIS-2012SA004967

PATIENT
  Age: 90 Year
  Sex: Male

DRUGS (3)
  1. MULTAQ [Suspect]
     Route: 048
     Dates: start: 20110601
  2. KEPPRA [Suspect]
     Dosage: 500MG IN AM AND 1000MG IN PM
     Route: 065
     Dates: start: 20110120
  3. KEPPRA [Suspect]
     Route: 065
     Dates: start: 20110601

REACTIONS (5)
  - SPEECH DISORDER [None]
  - CONVULSION [None]
  - DIZZINESS [None]
  - ANGER [None]
  - ANXIETY [None]
